FAERS Safety Report 4433290-X (Version None)
Quarter: 2004Q3

REPORT INFORMATION
  Report Type: 
  Country: None (occurrence: None)
  Receive Date: 20040824
  Receipt Date: 20040816
  Transmission Date: 20050211
  Serious: Yes (Other)
  Sender: FDA-Public Use
  Company Number: 002443

PATIENT
  Age: 72 Year
  Sex: Female

DRUGS (2)
  1. AYGESTIN [Suspect]
  2. PREMARIN [Suspect]

REACTIONS (1)
  - BREAST CANCER FEMALE [None]
